FAERS Safety Report 8245653-5 (Version None)
Quarter: 2012Q1

REPORT INFORMATION
  Report Type: 
  Country: None (occurrence: None)
  Receive Date: 20120330
  Receipt Date: 20120319
  Transmission Date: 20120608
  Serious: No
  Sender: FDA-Public Use
  Company Number: US-BIOGENIDEC-2011BI004445

PATIENT
  Sex: Female
  Weight: 49 kg

DRUGS (3)
  1. TYSABRI [Suspect]
     Indication: MULTIPLE SCLEROSIS
     Route: 042
     Dates: start: 20080520, end: 20090206
  2. TYSABRI [Suspect]
     Route: 042
     Dates: start: 20100526, end: 20120119
  3. COUMADIN [Concomitant]
     Indication: PROTEIN S DEFICIENCY

REACTIONS (17)
  - CONSTIPATION [None]
  - URINARY RETENTION [None]
  - MEMORY IMPAIRMENT [None]
  - EAR INJURY [None]
  - DYSPHAGIA [None]
  - OXYGEN SATURATION DECREASED [None]
  - ACQUIRED OESOPHAGEAL WEB [None]
  - FALL [None]
  - FAECALOMA [None]
  - MUSCULAR WEAKNESS [None]
  - FATIGUE [None]
  - ASPIRATION [None]
  - VULVOVAGINAL MYCOTIC INFECTION [None]
  - WEIGHT DECREASED [None]
  - STOMATITIS [None]
  - OSTEOPOROSIS [None]
  - ARTHRITIS [None]
